FAERS Safety Report 6094477-6 (Version None)
Quarter: 2009Q1

REPORT INFORMATION
  Report Type: 
  Country: None (occurrence: None)
  Receive Date: 20090224
  Receipt Date: 20090205
  Transmission Date: 20090719
  Serious: Yes (Disabling, Other)
  Sender: FDA-Public Use
  Company Number: 20090031 /

PATIENT
  Age: 35 Year
  Sex: Female

DRUGS (1)
  1. VENOFER [Suspect]
     Indication: ANAEMIA POSTOPERATIVE
     Dosage: 100 MG INTRAVENOUS
     Route: 042
     Dates: start: 20081203

REACTIONS (2)
  - EXTRAVASATION [None]
  - INFUSION SITE ABSCESS [None]
